FAERS Safety Report 11516769 (Version 1)
Quarter: 2015Q3

REPORT INFORMATION
  Report Type: Spontaneous
  Country: US (occurrence: None)
  Receive Date: 20150916
  Receipt Date: 20150916
  Transmission Date: 20151125
  Serious: Yes (Other)
  Sender: FDA-Public Use
  Company Number: None

PATIENT
  Age: 60 Year
  Sex: Male

DRUGS (1)
  1. SUTENT [Suspect]
     Active Substance: SUNITINIB MALATE
     Indication: RENAL CANCER
     Dosage: 1QD 2W ON 1W OFF
     Route: 048
     Dates: start: 20150818, end: 20150915

REACTIONS (3)
  - Fatigue [None]
  - Decreased appetite [None]
  - Skin exfoliation [None]

NARRATIVE: CASE EVENT DATE: 20150910
